FAERS Safety Report 14114444 (Version 1)
Quarter: 2017Q4

REPORT INFORMATION
  Report Type: Spontaneous
  Country: US (occurrence: US)
  Receive Date: 20171023
  Receipt Date: 20171023
  Transmission Date: 20180321
  Serious: Yes (Other)
  Sender: FDA-Public Use
  Company Number: None

PATIENT
  Age: 50 Year
  Sex: Female
  Weight: 88.2 kg

DRUGS (3)
  1. ALPRAZOLAM. [Concomitant]
     Active Substance: ALPRAZOLAM
  2. ESCITALOPRAM [Concomitant]
     Active Substance: ESCITALOPRAM OXALATE
  3. LAMOTRIGINE 25 MG [Suspect]
     Active Substance: LAMOTRIGINE
     Indication: BIPOLAR DISORDER
     Dosage: ?          QUANTITY:28 CAPSULE(S);?
     Route: 048

REACTIONS (6)
  - Influenza like illness [None]
  - Pyrexia [None]
  - Pruritus [None]
  - Rash [None]
  - Pain [None]
  - Gastric infection [None]

NARRATIVE: CASE EVENT DATE: 20171019
